FAERS Safety Report 9796584 (Version 8)
Quarter: 2015Q2

REPORT INFORMATION
  Report Type: Spontaneous
  Country: US (occurrence: US)
  Receive Date: 20140103
  Receipt Date: 20150611
  Transmission Date: 20150821
  Serious: Yes (Death, Life-Threatening, Hospitalization, Other)
  Sender: FDA-Public Use
  Company Number: US-009507513-1401USA000374

PATIENT
  Sex: Male
  Weight: 81.63 kg

DRUGS (1)
  1. JANUVIA [Suspect]
     Active Substance: SITAGLIPTIN PHOSPHATE
     Indication: TYPE 2 DIABETES MELLITUS
     Dosage: 100 MG, QD
     Route: 048
     Dates: start: 20080522, end: 20100302

REACTIONS (27)
  - Cholecystectomy [Unknown]
  - Biliary sphincterotomy [Unknown]
  - Death [Fatal]
  - Radiotherapy [Unknown]
  - Chronic obstructive pulmonary disease [Unknown]
  - QRS axis abnormal [Unknown]
  - Pancreaticoduodenectomy [Unknown]
  - Dyspnoea exertional [Unknown]
  - Hypoglycaemia [Recovered/Resolved]
  - Hyperaemia [Unknown]
  - Bronchitis chronic [Not Recovered/Not Resolved]
  - Bile duct adenocarcinoma [Not Recovered/Not Resolved]
  - Bile duct stent insertion [Unknown]
  - Pancreatitis [Unknown]
  - Spinal compression fracture [Unknown]
  - Impaired gastric emptying [Unknown]
  - Pancreatic carcinoma [Unknown]
  - Anaemia of chronic disease [Recovering/Resolving]
  - Hypotension [Unknown]
  - Arteriosclerosis [Unknown]
  - Biliary sphincterotomy [Unknown]
  - Bile duct stenosis [Unknown]
  - Nephrolithiasis [Unknown]
  - Diabetic autonomic neuropathy [Unknown]
  - Hypercholesterolaemia [Unknown]
  - Hepatic cancer [Not Recovered/Not Resolved]
  - Bile duct stent insertion [Unknown]

NARRATIVE: CASE EVENT DATE: 20080522
